FAERS Safety Report 20601587 (Version 1)
Quarter: 2022Q1

REPORT INFORMATION
  Report Type: Spontaneous
  Country: US (occurrence: US)
  Receive Date: 20220316
  Receipt Date: 20220316
  Transmission Date: 20220423
  Serious: No
  Sender: FDA-Public Use
  Company Number: US-TEVA-2022-US-2013133

PATIENT
  Sex: Male

DRUGS (1)
  1. TEMAZEPAM [Suspect]
     Active Substance: TEMAZEPAM
     Route: 065

REACTIONS (2)
  - Dyspnoea [Unknown]
  - Hypopnoea [Unknown]
